FAERS Safety Report 20142158 (Version 1)
Quarter: 2021Q4

REPORT INFORMATION
  Report Type: Spontaneous
  Country: US (occurrence: US)
  Receive Date: 20211202
  Receipt Date: 20211202
  Transmission Date: 20220303
  Serious: Yes (Other)
  Sender: FDA-Public Use
  Company Number: US-MYLANLABS-2021M1089206

PATIENT
  Age: 74 Year
  Sex: Male
  Weight: 83.91 kg

DRUGS (3)
  1. MUSE [Suspect]
     Active Substance: ALPROSTADIL
     Indication: Erectile dysfunction
     Dosage: 500 MICROGRAM
     Dates: start: 20211127
  2. XELJANZ [Concomitant]
     Active Substance: TOFACITINIB CITRATE
     Indication: Arthritis
     Dosage: 5 MILLIGRAM
     Route: 048
  3. IMODIUM [Concomitant]
     Active Substance: LOPERAMIDE HYDROCHLORIDE
     Indication: Diarrhoea
     Dosage: 2 MILLIGRAM

REACTIONS (2)
  - Drug ineffective [Unknown]
  - Application site pain [Unknown]

NARRATIVE: CASE EVENT DATE: 20211127
